FAERS Safety Report 5140616-0 (Version None)
Quarter: 2006Q4

REPORT INFORMATION
  Report Type: 
  Country: None (occurrence: None)
  Receive Date: 20061019
  Receipt Date: 20061010
  Transmission Date: 20070319
  Serious: Yes (Other)
  Sender: FDA-Public Use
  Company Number: THYM-11085

PATIENT
  Age: 59 Year
  Sex: Male

DRUGS (4)
  1. THYMOGLOBULIN [Suspect]
     Indication: RENAL TRANSPLANT
     Dates: start: 20061003, end: 20061003
  2. CARDEGIC [Concomitant]
  3. TENORMIN [Concomitant]
  4. AMLOR [Concomitant]

REACTIONS (3)
  - COMPLICATIONS OF TRANSPLANTED KIDNEY [None]
  - INCORRECT DRUG ADMINISTRATION RATE [None]
  - RENAL ARTERY THROMBOSIS [None]
